FAERS Safety Report 9895353 (Version 2)
Quarter: 2014Q1

REPORT INFORMATION
  Report Type: Spontaneous
  Country: US (occurrence: US)
  Receive Date: 20140213
  Receipt Date: 20140213
  Transmission Date: 20141002
  Serious: No
  Sender: FDA-Public Use
  Company Number: US-BRISTOL-MYERS SQUIBB COMPANY-18964353

PATIENT
  Age: 55 Year
  Sex: Female

DRUGS (1)
  1. ABATACEPT SUBQ INJECTION 125MG/ML [Suspect]
     Indication: RHEUMATOID ARTHRITIS
     Dosage: ORENCIAIV STRTD IN FEB^13 +SWITCHED TO ABATSUBQ FM2MAY13 LAST DOSE:1MAY13;SWITCHED BACK TOIV
     Route: 058

REACTIONS (2)
  - Malaise [Unknown]
  - Therapeutic response decreased [Unknown]
